FAERS Safety Report 9869006 (Version 3)
Quarter: 2014Q2

REPORT INFORMATION
  Report Type: Spontaneous
  Country: JP (occurrence: JP)
  Receive Date: 20140205
  Receipt Date: 20140411
  Transmission Date: 20141212
  Serious: Yes (Hospitalization)
  Sender: FDA-Public Use
  Company Number: JP-ROCHE-1344711

PATIENT
  Age: 78 Year
  Sex: Male

DRUGS (2)
  1. XOLAIR [Suspect]
     Indication: ASTHMA
     Route: 058
     Dates: start: 20131125, end: 20131209
  2. XOLAIR [Suspect]
     Route: 058
     Dates: start: 20140205

REACTIONS (1)
  - Pneumonia [Recovering/Resolving]
